FAERS Safety Report 18730390 (Version 1)
Quarter: 2021Q1

REPORT INFORMATION
  Report Type: Spontaneous
  Country: US (occurrence: US)
  Receive Date: 20210112
  Receipt Date: 20210112
  Transmission Date: 20210419
  Serious: No
  Sender: FDA-Public Use
  Company Number: US-INTRA-CELLULAR THERAPIES, INC.-2020ICT00265

PATIENT
  Age: 57 Year
  Sex: Female

DRUGS (1)
  1. CAPLYTA [Suspect]
     Active Substance: LUMATEPERONE
     Indication: BIPOLAR DISORDER
     Dosage: 42 MG, 1X/DAY
     Route: 048
     Dates: start: 20201125, end: 20201125

REACTIONS (14)
  - Fall [Unknown]
  - Influenza like illness [Unknown]
  - Dizziness [Unknown]
  - Middle insomnia [Unknown]
  - Balance disorder [Unknown]
  - Pain [Unknown]
  - Skin burning sensation [Recovered/Resolved]
  - Dizziness postural [Unknown]
  - Feeling cold [Unknown]
  - Headache [Unknown]
  - Feeling abnormal [Unknown]
  - Malaise [Unknown]
  - Vertigo [Unknown]
  - Off label use [Recovered/Resolved]

NARRATIVE: CASE EVENT DATE: 202011
